FAERS Safety Report 5959059-2 (Version None)
Quarter: 2008Q4

REPORT INFORMATION
  Report Type: 
  Country: None (occurrence: None)
  Receive Date: 20081120
  Receipt Date: 20081112
  Transmission Date: 20090506
  Serious: Yes (Other)
  Sender: FDA-Public Use
  Company Number: SE-BAXTER-2008BH012376

PATIENT
  Age: 6 Year
  Sex: Male

DRUGS (1)
  1. GAMMAGARD LIQUID [Suspect]
     Indication: MYOPATHY
     Dosage: DOSE UNIT:UNKNOWN
     Route: 065
     Dates: start: 20081001

REACTIONS (2)
  - ANAPHYLACTIC SHOCK [None]
  - CHILLS [None]
